FAERS Safety Report 7549267-1 (Version None)
Quarter: 2011Q2

REPORT INFORMATION
  Report Type: 
  Country: None (occurrence: None)
  Receive Date: 20110615
  Receipt Date: 20110610
  Transmission Date: 20111010
  Serious: Yes (Hospitalization, Other)
  Sender: FDA-Public Use
  Company Number: PHHY2010DE80573

PATIENT
  Sex: Male
  Weight: 90 kg

DRUGS (17)
  1. RASILEZ [Suspect]
     Indication: HYPERTENSION
     Dosage: 1 DF (150 MG), QD
     Dates: start: 20080926, end: 20100305
  2. AMLODIPINE [Concomitant]
     Dosage: 1 DF, QD
  3. LMF237 [Suspect]
     Dosage: 1 DF (1000/50 MG), BID
     Dates: start: 20090105
  4. RASILEZ [Suspect]
     Dosage: 1 DF (300 MG), QD
     Dates: start: 20100305
  5. DIOVAN [Suspect]
     Dosage: 1DF, BID
  6. NAC DIAGNOSTIC REAGENT [Concomitant]
     Dosage: 1 DF, QD
  7. HYDROCHLOROTHIAZIDE [Concomitant]
     Dosage: 1 DF (12.5 (UNSPECIFIED UNITS)), QD
  8. LMF237 [Suspect]
     Indication: DIABETES MELLITUS
     Dosage: 1 DF (850/50 MG), BID
  9. NEBIVOLOL HCL [Concomitant]
     Dosage: 1 DF, BID
  10. PANTOPRAZOLE [Concomitant]
     Dosage: 1 DF, QD
  11. SIMVASTATIN [Concomitant]
     Dosage: 1 DF, QD
  12. EXFORGE [Suspect]
     Indication: HYPERTENSION
     Dosage: 1 DF, QD
     Dates: start: 20080926
  13. TORSEMIDE [Concomitant]
     Dosage: 1 DF, QD
  14. METFORMIN HCL [Concomitant]
     Dosage: 1 DF, QD
  15. OMEPRAZOLE [Concomitant]
     Dosage: 1 DF, QD
  16. BERODUAL [Concomitant]
     Dosage: PRN
  17. ATROVENT [Concomitant]
     Dosage: PRN

REACTIONS (11)
  - RALES [None]
  - HYPERTENSIVE CRISIS [None]
  - VENTRICULAR EXTRASYSTOLES [None]
  - HEADACHE [None]
  - LEFT VENTRICULAR DYSFUNCTION [None]
  - CHEST X-RAY ABNORMAL [None]
  - DIZZINESS [None]
  - LEFT VENTRICULAR HYPERTROPHY [None]
  - BLOOD GLUCOSE INCREASED [None]
  - GLYCOSYLATED HAEMOGLOBIN INCREASED [None]
  - GASTROENTERITIS [None]
